FAERS Safety Report 8965597 (Version 4)
Quarter: 2013Q2

REPORT INFORMATION
  Report Type: Spontaneous
  Country: JP (occurrence: None)
  Receive Date: 20121206
  Receipt Date: 20130620
  Transmission Date: 20140414
  Serious: Yes (Hospitalization)
  Sender: FDA-Public Use
  Company Number: 0233927

PATIENT
  Age: 49 Year
  Sex: Female

DRUGS (6)
  1. TACHOSIL [Suspect]
     Indication: PROPHYLAXIS
     Dosage: 1 SHEET OF REGULAR SIZE
     Dates: start: 20120924, end: 20120924
  2. WARFARIN [Concomitant]
  3. MAGLAX [Concomitant]
  4. FERROMIA (FERROUS CITRATE) [Concomitant]
  5. LOXONIN (LOXOPROFEN SODIUM) [Concomitant]
  6. MUCOSTA (REBAMIPIDE) [Concomitant]

REACTIONS (1)
  - Intestinal obstruction [None]
